FAERS Safety Report 21249721 (Version 1)
Quarter: 2022Q3

REPORT INFORMATION
  Report Type: Spontaneous
  Country: US (occurrence: None)
  Receive Date: 20220824
  Receipt Date: 20220824
  Transmission Date: 20221027
  Serious: Yes (Life-Threatening, Hospitalization)
  Sender: FDA-Public Use
  Company Number: None

PATIENT
  Age: 28 Year
  Sex: Male
  Weight: 90.72 kg

DRUGS (1)
  1. DICLOFENAC SODIUM [Suspect]
     Active Substance: DICLOFENAC SODIUM

REACTIONS (6)
  - Hypersensitivity [None]
  - Pruritus [None]
  - Dizziness [None]
  - Cardiac disorder [None]
  - Hyperhidrosis [None]
  - Throat tightness [None]

NARRATIVE: CASE EVENT DATE: 20220817
